FAERS Safety Report 5102937-7 (Version None)
Quarter: 2006Q3

REPORT INFORMATION
  Report Type: 
  Country: None (occurrence: None)
  Receive Date: 20060912
  Receipt Date: 20060629
  Transmission Date: 20061208
  Serious: Yes (Hospitalization)
  Sender: FDA-Public Use
  Company Number: AU-BOEHRINGER INGELHEIM PHARMACEUTICALS, INC.-2006-BP-07524AU

PATIENT
  Age: 65 Year
  Sex: Male

DRUGS (2)
  1. ASASANTIN CAPSULES [Suspect]
  2. DIABEX [Concomitant]

REACTIONS (1)
  - CEREBROVASCULAR ACCIDENT [None]
